FAERS Safety Report 5986749-8 (Version None)
Quarter: 2008Q4

REPORT INFORMATION
  Report Type: 
  Country: None (occurrence: None)
  Receive Date: 20081209
  Receipt Date: 20081110
  Transmission Date: 20090506
  Serious: No
  Sender: FDA-Public Use
  Company Number: US-BAYER-200814368BCC

PATIENT
  Age: 84 Year
  Sex: Female
  Weight: 62 kg

DRUGS (10)
  1. ALEVE (CAPLET) [Suspect]
     Indication: DIABETES MELLITUS
     Dosage: TOTAL DAILY DOSE: 220 MG  UNIT DOSE: 220 MG
     Dates: start: 20081103, end: 20081110
  2. SIMVASTATIN [Concomitant]
  3. ROBITUSSIN [Concomitant]
  4. AMLODIPINE [Concomitant]
  5. DETROL [Concomitant]
  6. METFORMIN HCL [Concomitant]
  7. ASPIRIN [Concomitant]
  8. LISINOPRIL [Concomitant]
  9. FOSAMAX [Concomitant]
  10. PLAVIX [Concomitant]

REACTIONS (2)
  - ERYTHEMA [None]
  - PRURITUS [None]
